FAERS Safety Report 25050850 (Version 1)
Quarter: 2025Q1

REPORT INFORMATION
  Report Type: Spontaneous
  Country: US (occurrence: US)
  Receive Date: 20250307
  Receipt Date: 20250307
  Transmission Date: 20250408
  Serious: No
  Sender: FRESENIUS KABI
  Company Number: US-FreseniusKabi-FK202503092

PATIENT
  Sex: Female

DRUGS (1)
  1. XYLOCAINE MPF [Suspect]
     Active Substance: LIDOCAINE HYDROCHLORIDE
     Indication: Nerve block
     Route: 058
     Dates: start: 20250129, end: 20250129

REACTIONS (9)
  - Contraindicated product administered [Unknown]
  - Drug ineffective [Unknown]
  - Palpitations [Recovered/Resolved]
  - Headache [Recovering/Resolving]
  - Diarrhoea [Recovering/Resolving]
  - Brain fog [Recovering/Resolving]
  - Poor quality sleep [Recovered/Resolved]
  - Depression [Recovering/Resolving]
  - Muscle tightness [Recovered/Resolved]

NARRATIVE: CASE EVENT DATE: 20250129
